FAERS Safety Report 13662733 (Version 1)
Quarter: 2017Q2

REPORT INFORMATION
  Report Type: Spontaneous
  Country: US (occurrence: US)
  Receive Date: 20170616
  Receipt Date: 20170616
  Transmission Date: 20170830
  Serious: Yes (Disabling)
  Sender: FDA-Public Use
  Company Number: None

PATIENT
  Age: 31 Year
  Sex: Female

DRUGS (17)
  1. MICONAZOLE NITRATE 2% [Suspect]
     Active Substance: MICONAZOLE NITRATE
     Indication: ILLNESS ANXIETY DISORDER
  2. PLANT-BASED SCENT ABSORBERS W/OILS [Concomitant]
  3. BIOTIN [Concomitant]
     Active Substance: BIOTIN
  4. HYDROGEN PEROXIDE. [Concomitant]
     Active Substance: HYDROGEN PEROXIDE
  5. PEPPERMINT OIL [Suspect]
     Active Substance: PEPPERMINT OIL
  6. NEOSPORIN [Concomitant]
     Active Substance: BACITRACIN ZINC\NEOMYCIN SULFATE\POLYMYXIN B SULFATE
  7. PROBIOTIC PEARLS [Concomitant]
  8. ALCOHOL. [Concomitant]
     Active Substance: ALCOHOL
  9. KLONOPIN [Concomitant]
     Active Substance: CLONAZEPAM
  10. PROPRANOLOL [Concomitant]
     Active Substance: PROPRANOLOL HYDROCHLORIDE
  11. ENSURE [Concomitant]
     Active Substance: AMINO ACIDS\DEXTROSE\ELECTROLYTES NOS\SOYBEAN OIL\VITAMINS
  12. GINGER ALE [Concomitant]
  13. SULFAMEDS [Concomitant]
  14. IODINE TINCTURE. [Concomitant]
     Active Substance: IODINE TINCTURE
  15. FOLATE [Concomitant]
     Active Substance: FOLATE SODIUM
  16. IRON SUPPLEMENT W/B-12 [Concomitant]
  17. TEA TREE OIL. [Concomitant]
     Active Substance: TEA TREE OIL

REACTIONS (9)
  - Lung disorder [None]
  - Unevaluable event [None]
  - Product use issue [None]
  - Dehydration [None]
  - Accidental exposure to product [None]
  - Migraine [None]
  - Dysgeusia [None]
  - Visual impairment [None]
  - Environmental exposure [None]

NARRATIVE: CASE EVENT DATE: 20170612
